FAERS Safety Report 19631392 (Version 1)
Quarter: 2021Q3

REPORT INFORMATION
  Report Type: Spontaneous
  Country: US (occurrence: US)
  Receive Date: 20210729
  Receipt Date: 20210729
  Transmission Date: 20211014
  Serious: Yes (Hospitalization, Other)
  Sender: FDA-Public Use
  Company Number: NVSC2021US169464

PATIENT
  Age: 40 Year
  Sex: Female

DRUGS (2)
  1. VINCRISTINE [Concomitant]
     Active Substance: VINCRISTINE
     Indication: B PRECURSOR TYPE ACUTE LEUKAEMIA
     Dosage: 2 MG, UNKNOWN, ON DAY 1
     Route: 042
  2. METHOTREXATE. [Suspect]
     Active Substance: METHOTREXATE
     Indication: B PRECURSOR TYPE ACUTE LEUKAEMIA
     Dosage: 100 MG/M2, INTERIM MAINTENANCE PHASE, ON DAY 1, RECEIVED 250 MG
     Route: 042

REACTIONS (6)
  - Acute kidney injury [Unknown]
  - Skin toxicity [Unknown]
  - Myelosuppression [Unknown]
  - Toxicity to various agents [Unknown]
  - Mucosal inflammation [Unknown]
  - Drug-induced liver injury [Unknown]
